FAERS Safety Report 5926888-0 (Version None)
Quarter: 2008Q4

REPORT INFORMATION
  Report Type: 
  Country: None (occurrence: None)
  Receive Date: 20081022
  Receipt Date: 20081020
  Transmission Date: 20090506
  Serious: Yes (Hospitalization)
  Sender: FDA-Public Use
  Company Number: US-ASTRAZENECA-2008UW23154

PATIENT
  Sex: Female

DRUGS (2)
  1. CRESTOR [Suspect]
     Route: 048
     Dates: start: 20061001, end: 20071101
  2. CRESTOR [Suspect]
     Route: 048

REACTIONS (2)
  - BLOOD GLUCOSE INCREASED [None]
  - HIP ARTHROPLASTY [None]
